FAERS Safety Report 17578442 (Version 1)
Quarter: 2020Q1

REPORT INFORMATION
  Report Type: Spontaneous
  Country: US (occurrence: US)
  Receive Date: 20200324
  Receipt Date: 20200324
  Transmission Date: 20200409
  Serious: Yes (Death, Hospitalization, Other)
  Sender: FDA-Public Use
  Company Number: US-SUN PHARMACEUTICAL INDUSTRIES LTD-2020R1-241397

PATIENT
  Age: 71 Year
  Sex: Female

DRUGS (1)
  1. ALLOPURINOL. [Suspect]
     Active Substance: ALLOPURINOL
     Indication: GOUT
     Route: 065

REACTIONS (10)
  - Gastritis [Unknown]
  - Anaemia [Unknown]
  - Toxic epidermal necrolysis [Unknown]
  - Skin disorder [Unknown]
  - Septic shock [Fatal]
  - Stevens-Johnson syndrome [Unknown]
  - Respiratory failure [Unknown]
  - Haematochezia [Unknown]
  - Diarrhoea haemorrhagic [Unknown]
  - Renal failure [Unknown]
